FAERS Safety Report 9839226 (Version 3)
Quarter: 2014Q2

REPORT INFORMATION
  Report Type: Spontaneous
  Country: IT (occurrence: None)
  Receive Date: 20140116
  Receipt Date: 20140403
  Transmission Date: 20141212
  Serious: Yes (Death)
  Sender: FDA-Public Use
  Company Number: IT-MDCO-14-00009

PATIENT
  Age: 69 Year
  Sex: Male

DRUGS (2)
  1. ANGIOX [Suspect]
     Indication: CAROTID ANGIOPLASTY
     Dosage: (UNKNOWN), UNKNOWN
     Route: 040
     Dates: start: 201312, end: 201312
  2. CONTRAST MEDIUM [Suspect]
     Indication: CAROTID ANGIOPLASTY
     Dates: start: 201312, end: 201312

REACTIONS (5)
  - Hypersensitivity [None]
  - Anaphylactic shock [None]
  - Hypotension [None]
  - Off label use [None]
  - No therapeutic response [None]
